FAERS Safety Report 17772886 (Version 2)
Quarter: 2020Q3

REPORT INFORMATION
  Report Type: Spontaneous
  Country: US (occurrence: US)
  Receive Date: 20200512
  Receipt Date: 20200702
  Transmission Date: 20201102
  Serious: No
  Sender: FDA-Public Use
  Company Number: US-ASTRAZENECA-2020SE59784

PATIENT
  Age: 13190 Day
  Sex: Female
  Weight: 98 kg

DRUGS (7)
  1. DUONEB [Concomitant]
     Active Substance: ALBUTEROL SULFATE\IPRATROPIUM BROMIDE
  2. QVAR RH [Concomitant]
     Dosage: 80 2 PUFFS, TWO TIMES A DAY
  3. NUCALA [Concomitant]
     Active Substance: MEPOLIZUMAB
  4. FASENRA [Suspect]
     Active Substance: BENRALIZUMAB
     Indication: ASTHMA
     Dosage: 30.0MG UNKNOWN
     Route: 058
     Dates: start: 20200430, end: 20200430
  5. SYMBICORT [Concomitant]
     Active Substance: BUDESONIDE\FORMOTEROL FUMARATE DIHYDRATE
     Dosage: 160/4.5 UG, 2 PUFFS, TWO TIMES A DAY
     Dates: start: 20191226
  6. XOLAIR [Concomitant]
     Active Substance: OMALIZUMAB
     Indication: PERITONITIS BACTERIAL
     Route: 058
  7. ALBUTEROL HFA [Concomitant]
     Active Substance: ALBUTEROL SULFATE

REACTIONS (1)
  - Urticaria [Recovered/Resolved with Sequelae]

NARRATIVE: CASE EVENT DATE: 20200430
